FAERS Safety Report 7489693-2 (Version None)
Quarter: 2011Q2

REPORT INFORMATION
  Report Type: 
  Country: None (occurrence: None)
  Receive Date: 20110519
  Receipt Date: 20110510
  Transmission Date: 20111010
  Serious: No
  Sender: FDA-Public Use
  Company Number: US-BIOGENIDEC-2011BI017758

PATIENT
  Sex: Male

DRUGS (2)
  1. TYSABRI [Suspect]
     Indication: MULTIPLE SCLEROSIS
     Route: 042
     Dates: start: 20110331
  2. BENDADRYL [Concomitant]
     Indication: PREMEDICATION

REACTIONS (7)
  - ABNORMAL SENSATION IN EYE [None]
  - MALAISE [None]
  - HYPERSENSITIVITY [None]
  - FEELING ABNORMAL [None]
  - FATIGUE [None]
  - VISUAL IMPAIRMENT [None]
  - ANTIBODY TEST POSITIVE [None]
